FAERS Safety Report 20321472 (Version 1)
Quarter: 2022Q1

REPORT INFORMATION
  Report Type: Spontaneous
  Country: US (occurrence: US)
  Receive Date: 20220111
  Receipt Date: 20220111
  Transmission Date: 20220423
  Serious: Yes (Other)
  Sender: FDA-Public Use
  Company Number: US-MYLANLABS-2021M1093661

PATIENT
  Age: 48 Year
  Sex: Female

DRUGS (2)
  1. WARFARIN [Suspect]
     Active Substance: WARFARIN
     Indication: Mitral valve disease
     Dosage: 9 MILLIGRAM, QD (4 MG +  5 MG TABLET)
     Route: 048
     Dates: start: 20200603
  2. WARFARIN [Suspect]
     Active Substance: WARFARIN
     Indication: Anticoagulant therapy
     Dosage: 8.5 MILLIGRAM, QD (DOSE DECREASED)
     Route: 048
     Dates: start: 2020

REACTIONS (2)
  - Haemorrhage [Recovered/Resolved]
  - International normalised ratio increased [Recovered/Resolved]

NARRATIVE: CASE EVENT DATE: 20200101
